FAERS Safety Report 18666350 (Version 2)
Quarter: 2021Q1

REPORT INFORMATION
  Report Type: Spontaneous
  Country: US (occurrence: US)
  Receive Date: 20201227
  Receipt Date: 20210112
  Transmission Date: 20210419
  Serious: No
  Sender: FDA-Public Use
  Company Number: US-LUPIN PHARMACEUTICALS INC.-2020-07842

PATIENT
  Age: 1 Month
  Sex: Male

DRUGS (1)
  1. FAMOTIDINE FOR ORAL SUSPENSION USP 40 MG/5ML [Suspect]
     Active Substance: FAMOTIDINE
     Indication: PRODUCT USED FOR UNKNOWN INDICATION
     Dosage: UNK
     Route: 065
     Dates: start: 20200915

REACTIONS (2)
  - No adverse event [Unknown]
  - Expired product administered [Unknown]

NARRATIVE: CASE EVENT DATE: 20200915
